FAERS Safety Report 23021148 (Version 7)
Quarter: 2024Q1

REPORT INFORMATION
  Report Type: Spontaneous
  Country: US (occurrence: US)
  Receive Date: 20231003
  Receipt Date: 20240213
  Transmission Date: 20240410
  Serious: No
  Sender: FDA-Public Use
  Company Number: US-PFIZER INC-202300298005

PATIENT
  Age: 3 Year
  Sex: Male
  Weight: 14.966 kg

DRUGS (1)
  1. GENOTROPIN [Suspect]
     Active Substance: SOMATROPIN
     Indication: Prader-Willi syndrome
     Dosage: 0.4 MG, 1X/DAY (EVERY EVENING)
     Route: 058

REACTIONS (8)
  - Incorrect dose administered by device [Unknown]
  - Wrong technique in device usage process [Unknown]
  - Drug dose omission by device [Unknown]
  - Device leakage [Unknown]
  - Device malfunction [Unknown]
  - Device information output issue [Unknown]
  - Device breakage [Unknown]
  - Device defective [Unknown]

NARRATIVE: CASE EVENT DATE: 20230901
